FAERS Safety Report 25844980 (Version 2)
Quarter: 2025Q4

REPORT INFORMATION
  Report Type: Report from Study
  Country: CA (occurrence: CA)
  Receive Date: 20250925
  Receipt Date: 20251215
  Transmission Date: 20260118
  Serious: Yes (Hospitalization, Other)
  Sender: ABBVIE
  Company Number: CA-ABBVIE-6470575

PATIENT
  Age: 72 Year
  Sex: Male
  Weight: 106 kg

DRUGS (4)
  1. SKYRIZI [Suspect]
     Active Substance: RISANKIZUMAB-RZAA
     Indication: Crohn^s disease
     Route: 058
     Dates: start: 2025
  2. SKYRIZI [Suspect]
     Active Substance: RISANKIZUMAB-RZAA
     Indication: Crohn^s disease
     Dosage: WEEK 0
     Route: 042
  3. SKYRIZI [Suspect]
     Active Substance: RISANKIZUMAB-RZAA
     Indication: Crohn^s disease
     Dosage: WEEK 4 AND 8
     Route: 042
     Dates: end: 20250822
  4. PREDNISONE [Concomitant]
     Active Substance: PREDNISONE
     Indication: Product used for unknown indication
     Dates: end: 202512

REACTIONS (9)
  - Vascular device infection [Unknown]
  - Abdominal pain [Unknown]
  - Arthritis [Unknown]
  - Leukaemia [Unknown]
  - Feeling abnormal [Unknown]
  - Diarrhoea [Unknown]
  - Furuncle [Unknown]
  - Haemorrhage [Unknown]
  - Blood iron decreased [Unknown]

NARRATIVE: CASE EVENT DATE: 20250917
